FAERS Safety Report 18228685 (Version 1)
Quarter: 2020Q3

REPORT INFORMATION
  Report Type: Spontaneous
  Country: US (occurrence: US)
  Receive Date: 20200903
  Receipt Date: 20200903
  Transmission Date: 20201103
  Serious: No
  Sender: FDA-Public Use
  Company Number: US-BECTON DICKINSON-2019BDN00338

PATIENT
  Age: 15 Year
  Sex: Male
  Weight: 92.97 kg

DRUGS (1)
  1. CHLORAPREP WITH TINT [Suspect]
     Active Substance: CHLORHEXIDINE GLUCONATE\ISOPROPYL ALCOHOL
     Indication: INFECTION PROPHYLAXIS
     Dosage: UNK
     Route: 061
     Dates: start: 20190725, end: 20190725

REACTIONS (4)
  - Application site rash [Recovered/Resolved]
  - Application site pruritus [Recovered/Resolved]
  - Skin weeping [Recovered/Resolved]
  - Application site hypersensitivity [Recovered/Resolved]

NARRATIVE: CASE EVENT DATE: 20190727
